FAERS Safety Report 18005183 (Version 5)
Quarter: 2024Q4

REPORT INFORMATION
  Report Type: Spontaneous
  Country: US (occurrence: US)
  Receive Date: 20200710
  Receipt Date: 20241114
  Transmission Date: 20250115
  Serious: No
  Sender: NOVARTIS
  Company Number: NVSC2020US194304

PATIENT
  Age: 59 Year
  Sex: Female

DRUGS (2)
  1. COSENTYX [Suspect]
     Active Substance: SECUKINUMAB
     Indication: Product used for unknown indication
     Dosage: 300 MG/KG, Q4W (INJECTION NOS)
     Route: 050
     Dates: start: 20171004
  2. COSENTYX [Suspect]
     Active Substance: SECUKINUMAB
     Dosage: 300 MG/KG, Q4W
     Route: 065
     Dates: start: 20191120

REACTIONS (2)
  - Tendonitis [Unknown]
  - Hepatic steatosis [Unknown]

NARRATIVE: CASE EVENT DATE: 20200201
